FAERS Safety Report 7074903-6 (Version None)
Quarter: 2010Q4

REPORT INFORMATION
  Report Type: 
  Country: None (occurrence: None)
  Receive Date: 20101029
  Receipt Date: 20101029
  Transmission Date: 20110411
  Serious: Yes (Death)
  Sender: FDA-Public Use
  Company Number: GB-ABBOTT-10P-167-0680142-00

PATIENT
  Sex: Male

DRUGS (43)
  1. HUMIRA [Suspect]
     Indication: RHEUMATOID ARTHRITIS
     Route: 058
     Dates: start: 20040830, end: 20100125
  2. COLLISTIN [Concomitant]
     Dosage: NEBULISER   CONTINUE
     Route: 055
     Dates: start: 20040211
  3. TERBUTALINE SULFATE [Concomitant]
     Dosage: NEBULISED   CONTINUE
     Dates: start: 20040211
  4. BECLOMETHASONE DIPROPIONATE [Concomitant]
     Dosage: CONTINUE
  5. ESOMEPRAZOLE MAGNESIUM [Concomitant]
     Dosage: CONTINUE
     Route: 048
  6. ASPIRIN [Concomitant]
     Dosage: CONTINUE
     Route: 048
  7. NICORNDIL [Concomitant]
     Dosage: CONTINUE
     Route: 048
  8. IVABRADINE [Concomitant]
     Dosage: CONTINUE
     Route: 048
  9. SIMVASTATIN [Concomitant]
     Dosage: NOCTE   CONTINUE
     Route: 048
  10. CARBOCISTEINE [Concomitant]
     Dosage: CONTINUE
     Route: 048
  11. METHADONE [Concomitant]
     Dosage: 12.5MG MORNING, 10MG LUNCH AND TEA   12.5MG AM,10 MG LUNCH AND TEA
     Route: 048
  12. STRONTIUM RANELATE [Concomitant]
     Dosage: 2 GRAM SACHET:NOTE CONTINUE
     Route: 048
  13. ISOSORBIDE MONONITRATE M/R [Concomitant]
     Dosage: CONTINUE
     Route: 048
  14. AMITRIPTYLINE HCL [Concomitant]
     Dosage: NOCTE    CONTINUE
     Route: 048
     Dates: start: 20040211
  15. PREDNISOLONE [Concomitant]
     Dosage: 10 MG DAILY,CONTINUE
     Route: 048
  16. FERROUS FUMARATE [Concomitant]
     Dosage: CONTINUE
     Route: 048
  17. SENNA [Concomitant]
     Dosage: NOCTE    CONTINUE
  18. IPRATROPIUM BROMIDE [Concomitant]
     Dosage: CONTINUE
     Route: 055
  19. PARACETAMOL [Concomitant]
     Dosage: PRN
     Route: 048
  20. VISCOTEARS [Concomitant]
     Dosage: PRN
  21. FOLIC ACID [Concomitant]
     Dosage: C
     Route: 048
  22. FENTYL [Concomitant]
     Route: 061
  23. LANTUS [Concomitant]
     Dosage: NOCTE    2 UNIT NOTE, CONTINUE
     Route: 058
  24. HUMALOG [Concomitant]
     Dosage: 4 UNITS MORNING AND EVENING   MORNING AND EVENING
  25. HUMALOG [Concomitant]
     Dosage: AT MIDDAY    7 UNIT AT MIDDAY CONTINUE
     Route: 058
  26. MULTI-VITAMIN [Concomitant]
     Dosage: AT MIDDAY CONTINUE
     Route: 048
  27. ADCAL D3 [Concomitant]
     Dosage: CONTINUE
     Route: 048
  28. LACTULOSE [Concomitant]
     Dosage: PRN
     Route: 048
  29. AMINOPHYLLINE MODIFIED RELEASE [Concomitant]
     Dosage: CONTINUE
     Route: 048
     Dates: start: 20040211
  30. ISPAGHULA HUSK [Concomitant]
     Dosage: CONTINUE
     Route: 048
  31. FENTANYL CITRATE [Concomitant]
     Dosage: 1 PATCH
     Route: 061
  32. GLYCERYL TRINITRATE S/L [Concomitant]
     Indication: CHEST PAIN
     Dosage: 1 OR 2 TABLETS   PRN    1 OR 2 TABS PRN, CONTINUE
     Route: 060
  33. ALGINATES [Concomitant]
     Dates: start: 20040211
  34. BECLOFORTE [Concomitant]
     Dates: start: 20040211
  35. CO-DYDRAMOL [Concomitant]
     Dates: start: 20040211
  36. DIDRONEL [Concomitant]
     Dates: start: 20040211
  37. HUMAN INSULIN [Concomitant]
     Dates: start: 20040211
  38. IPRATROPIUM BROMIDE [Concomitant]
     Dates: start: 20040211
  39. LANSOPRAZOLE [Concomitant]
     Dates: start: 20040211
  40. NABUMETONE [Concomitant]
     Dates: start: 20040211
  41. PERINDOPRIL [Concomitant]
     Dates: start: 20040211
  42. PREDNESOL [Concomitant]
     Dates: start: 20040211
  43. SALBUTAMOL [Concomitant]
     Dates: start: 20040211

REACTIONS (4)
  - ANGINA PECTORIS [None]
  - BACTERIAL DISEASE CARRIER [None]
  - BRONCHOPNEUMONIA [None]
  - HAEMOSTASIS [None]
